FAERS Safety Report 7129107-5 (Version None)
Quarter: 2010Q4

REPORT INFORMATION
  Report Type: 
  Country: None (occurrence: None)
  Receive Date: 20101130
  Receipt Date: 20101119
  Transmission Date: 20110411
  Serious: Yes (Hospitalization)
  Sender: FDA-Public Use
  Company Number: JP-ROCHE-744871

PATIENT
  Sex: Male
  Weight: 55 kg

DRUGS (7)
  1. AVASTIN [Suspect]
     Indication: RECTAL CANCER
     Route: 041
     Dates: start: 20100315
  2. CAMPTOSAR [Concomitant]
     Route: 041
  3. FLUOROURACIL [Concomitant]
     Route: 041
  4. LEVOFOLINATE [Concomitant]
     Route: 041
  5. KYTRIL [Concomitant]
     Route: 065
  6. BETAMETHASONE [Concomitant]
     Route: 065
  7. BUSCOPAN [Concomitant]
     Route: 065

REACTIONS (1)
  - CATARACT [None]
